FAERS Safety Report 12728379 (Version 1)
Quarter: 2016Q3

REPORT INFORMATION
  Report Type: Spontaneous
  Country: GB (occurrence: GB)
  Receive Date: 20160909
  Receipt Date: 20160909
  Transmission Date: 20161109
  Serious: Yes (Death, Other)
  Sender: FDA-Public Use
  Company Number: GB-ASTRAZENECA-2016SE94130

PATIENT
  Age: 70 Year
  Sex: Male
  Weight: 65 kg

DRUGS (9)
  1. FUROSEMIDE. [Concomitant]
     Active Substance: FUROSEMIDE
  2. ASPIRIN. [Concomitant]
     Active Substance: ASPIRIN
  3. HUMULIN M3 [Concomitant]
     Active Substance: INSULIN HUMAN
  4. ADCAL-D3 [Concomitant]
     Active Substance: CALCIUM CARBONATE\CHOLECALCIFEROL
  5. SALBUTAMOL [Concomitant]
     Active Substance: ALBUTEROL
  6. SITAGLIPTIN AND METFORMIN [Concomitant]
  7. BISOPROLOL [Concomitant]
     Active Substance: BISOPROLOL
  8. DAPAGLIFLOZIN [Suspect]
     Active Substance: DAPAGLIFLOZIN
     Indication: INSULIN-REQUIRING TYPE 2 DIABETES MELLITUS
     Route: 048
  9. ATORVASTATIN [Concomitant]
     Active Substance: ATORVASTATIN

REACTIONS (2)
  - Acute kidney injury [Not Recovered/Not Resolved]
  - Diabetic ketoacidosis [Fatal]
